FAERS Safety Report 4711457-0 (Version None)
Quarter: 2005Q3

REPORT INFORMATION
  Report Type: 
  Country: None (occurrence: None)
  Receive Date: 20050711
  Receipt Date: 20050624
  Transmission Date: 20060218
  Serious: Yes (Hospitalization)
  Sender: FDA-Public Use
  Company Number: 8009107

PATIENT
  Age: 45 Year
  Sex: Male

DRUGS (8)
  1. KEPPRA [Suspect]
     Indication: EPILEPSY
     Dosage: 2500 MG/D PO
     Route: 048
     Dates: start: 20040927, end: 20050201
  2. KEPPRA [Suspect]
     Indication: EPILEPSY
     Dosage: 4500 MG/D PO
     Route: 048
     Dates: start: 20050205, end: 20050218
  3. KEPPRA [Suspect]
     Indication: EPILEPSY
     Dosage: 2000 MG/D PO
     Route: 048
     Dates: start: 20050219
  4. RITALIN [Concomitant]
  5. PREVACID [Concomitant]
  6. SINGULAIR [Concomitant]
  7. VALIUM [Concomitant]
  8. TRILEPTAL [Concomitant]

REACTIONS (9)
  - AMNESIA [None]
  - COMPLEX PARTIAL SEIZURES [None]
  - CONVULSION [None]
  - DEPRESSED LEVEL OF CONSCIOUSNESS [None]
  - DRUG PRESCRIBING ERROR [None]
  - FALL [None]
  - LOSS OF CONSCIOUSNESS [None]
  - SOMNOLENCE [None]
  - TREMOR [None]
